FAERS Safety Report 25808078 (Version 1)
Quarter: 2025Q3

REPORT INFORMATION
  Report Type: Spontaneous
  Country: EU (occurrence: EU)
  Receive Date: 20250916
  Receipt Date: 20250916
  Transmission Date: 20251020
  Serious: Yes (Hospitalization, Other)
  Sender: PANACEA BIOTEC PHARMA LIMITED
  Company Number: EU-PBT-010738

PATIENT
  Age: 19 Year
  Sex: Male

DRUGS (5)
  1. TACROLIMUS [Suspect]
     Active Substance: TACROLIMUS
     Indication: Prophylaxis against graft versus host disease
     Route: 042
     Dates: start: 202311
  2. MYCOPHENOLIC ACID [Suspect]
     Active Substance: MYCOPHENOLIC ACID
     Indication: Prophylaxis against graft versus host disease
     Route: 065
     Dates: start: 202311
  3. BENDAMUSTINE [Suspect]
     Active Substance: BENDAMUSTINE
     Indication: Hodgkin^s disease
     Dosage: ON DAYS 1 AND 2  FOR 5 CYCLES
     Route: 065
     Dates: start: 202307, end: 202310
  4. PEMBROLIZUMAB [Suspect]
     Active Substance: PEMBROLIZUMAB
     Indication: Hodgkin^s disease
     Dosage: ON DAY 1, 5 CYCLES
     Route: 042
     Dates: start: 202307, end: 202310
  5. CYCLOPHOSPHAMIDE [Suspect]
     Active Substance: CYCLOPHOSPHAMIDE
     Indication: Prophylaxis against graft versus host disease
     Route: 065
     Dates: start: 202311

REACTIONS (8)
  - Neutropenia [Unknown]
  - Malignant neoplasm progression [Recovered/Resolved]
  - Hodgkin^s disease [Recovered/Resolved]
  - Acute graft versus host disease in skin [Recovered/Resolved]
  - Acute graft versus host disease in liver [Recovered/Resolved]
  - Clostridium difficile infection [Recovered/Resolved]
  - BK virus infection [Recovered/Resolved]
  - Product use in unapproved indication [Unknown]

NARRATIVE: CASE EVENT DATE: 20230101
